FAERS Safety Report 11695891 (Version 1)
Quarter: 2015Q4

REPORT INFORMATION
  Report Type: Spontaneous
  Country: US (occurrence: None)
  Receive Date: 20151103
  Receipt Date: 20151103
  Transmission Date: 20160304
  Serious: Yes (Hospitalization, Other)
  Sender: FDA-Public Use
  Company Number: None

PATIENT
  Age: 21 Year
  Sex: Female
  Weight: 79.38 kg

DRUGS (1)
  1. SULFASALAZINE. [Suspect]
     Active Substance: SULFASALAZINE
     Indication: COLITIS ULCERATIVE
     Dosage: 2 PILLS THREE TIMES DAILY
     Route: 048

REACTIONS (5)
  - Arthralgia [None]
  - Condition aggravated [None]
  - Economic problem [None]
  - Colitis ulcerative [None]
  - Systemic lupus erythematosus [None]

NARRATIVE: CASE EVENT DATE: 20150905
